FAERS Safety Report 9992258 (Version 1)
Quarter: 2014Q1

REPORT INFORMATION
  Report Type: Spontaneous
  Country: US (occurrence: US)
  Receive Date: 20140310
  Receipt Date: 20140310
  Transmission Date: 20141002
  Serious: No
  Sender: FDA-Public Use
  Company Number: US-ASTELLAS-2013US013323

PATIENT
  Sex: Male
  Weight: 84 kg

DRUGS (4)
  1. XTANDI [Suspect]
     Indication: PROSTATE CANCER
     Dosage: 160 MG, UID/QD
     Route: 048
  2. ZOMETA [Concomitant]
     Indication: BONE DENSITY ABNORMAL
     Dosage: ONCE EVERY 3 MONTHS
     Route: 065
  3. PERCOCET                           /00446701/ [Concomitant]
     Indication: PAIN
     Dosage: 5 MG, PRN
     Route: 065
  4. PROVENGE [Concomitant]
     Indication: WHITE BLOOD CELL COUNT
     Dosage: UNK
     Route: 065

REACTIONS (5)
  - Diarrhoea [Not Recovered/Not Resolved]
  - Dizziness [Not Recovered/Not Resolved]
  - Headache [Not Recovered/Not Resolved]
  - Fatigue [Not Recovered/Not Resolved]
  - Asthenia [Not Recovered/Not Resolved]
